FAERS Safety Report 7983295-7 (Version None)
Quarter: 2011Q4

REPORT INFORMATION
  Report Type: 
  Country: None (occurrence: None)
  Receive Date: 20111215
  Receipt Date: 20111208
  Transmission Date: 20120403
  Serious: Yes (Other)
  Sender: FDA-Public Use
  Company Number: US-ASTRAZENECA-2011SE74735

PATIENT
  Age: 52 Year
  Sex: Female
  Weight: 72.1 kg

DRUGS (6)
  1. SEROQUEL [Suspect]
     Route: 048
  2. TRAZODONE HCL [Concomitant]
  3. TRAMADOL HCL [Concomitant]
     Dosage: 50 MG UP TO FOUR TIMES A DAY AS NEEDED
  4. MOBIC [Concomitant]
  5. TRAMADOL HCL [Concomitant]
     Dosage: TWO TIMES A DAY
  6. SEROQUEL [Suspect]
     Route: 048

REACTIONS (6)
  - ABDOMINAL DISCOMFORT [None]
  - INTERVERTEBRAL DISC DISORDER [None]
  - HYPERCHOLESTEROLAEMIA [None]
  - INSOMNIA [None]
  - MYALGIA [None]
  - NECK PAIN [None]
